FAERS Safety Report 18152164 (Version 1)
Quarter: 2020Q3

REPORT INFORMATION
  Report Type: Spontaneous
  Country: CN (occurrence: CN)
  Receive Date: 20200814
  Receipt Date: 20200814
  Transmission Date: 20201103
  Serious: Yes (Death, Other)
  Sender: FDA-Public Use
  Company Number: CN-ROCHE-2657111

PATIENT
  Age: 68 Year
  Sex: Male

DRUGS (6)
  1. OXALIPLATIN. [Concomitant]
     Active Substance: OXALIPLATIN
     Indication: GASTRIC CANCER
     Dates: start: 20180426
  2. HERCEPTIN [Suspect]
     Active Substance: TRASTUZUMAB
     Indication: GASTRIC CANCER
     Route: 065
     Dates: start: 20180426
  3. HERCEPTIN [Suspect]
     Active Substance: TRASTUZUMAB
     Route: 065
     Dates: start: 201810, end: 201903
  4. TORIPALIMAB. [Concomitant]
     Active Substance: TORIPALIMAB
     Indication: GASTRIC CANCER
     Dates: start: 20190523, end: 20191015
  5. TEGAFUR GIMERACIL AND OTERACIL POTASSIUM [Concomitant]
     Active Substance: GIMERACIL\OTERACIL\TEGAFUR
     Dates: start: 201810, end: 201903
  6. TEGAFUR GIMERACIL AND OTERACIL POTASSIUM [Concomitant]
     Active Substance: GIMERACIL\OTERACIL\TEGAFUR
     Indication: GASTRIC CANCER
     Dates: start: 20180426

REACTIONS (7)
  - Death [Fatal]
  - Cardiac failure [Unknown]
  - Interstitial lung disease [Unknown]
  - Hydrothorax [Unknown]
  - Haemorrhage [Unknown]
  - Neuropathy peripheral [Unknown]
  - Metastases to bone [Unknown]

NARRATIVE: CASE EVENT DATE: 201903
